FAERS Safety Report 15545697 (Version 1)
Quarter: 2018Q4

REPORT INFORMATION
  Report Type: Spontaneous
  Country: US (occurrence: US)
  Receive Date: 20181023
  Receipt Date: 20181023
  Transmission Date: 20190205
  Serious: Yes (Disabling)
  Sender: FDA-Public Use
  Company Number: None

PATIENT
  Age: 71 Year
  Sex: Female
  Weight: 72 kg

DRUGS (9)
  1. ASACOL [Concomitant]
     Active Substance: MESALAMINE
     Dates: start: 20050808, end: 20130722
  2. METOPROLOL. [Concomitant]
     Active Substance: METOPROLOL
     Dates: start: 20150407
  3. SIMPONI ARIA [Suspect]
     Active Substance: GOLIMUMAB
     Indication: ARTHRITIS
     Dosage: OTHER FREQUENCY:EVERY 2 MONTHS;?
     Route: 042
     Dates: start: 20160212, end: 20180315
  4. HYDROCODONE-ACETAMIN 5-325 [Concomitant]
     Dates: start: 20070521
  5. PREDNISONE. [Concomitant]
     Active Substance: PREDNISONE
     Dates: start: 20050808, end: 20180509
  6. SIMPONI ARIA [Suspect]
     Active Substance: GOLIMUMAB
     Indication: COLITIS ULCERATIVE
     Dosage: OTHER FREQUENCY:EVERY 2 MONTHS;?
     Route: 042
     Dates: start: 20160212, end: 20180315
  7. LOSARTAN. [Concomitant]
     Active Substance: LOSARTAN
     Dates: start: 20081223
  8. ATORVASTATIN [Concomitant]
     Active Substance: ATORVASTATIN
     Dates: start: 20050714
  9. LLIALDA [Concomitant]
     Dates: start: 20130722

REACTIONS (7)
  - Optic neuritis [None]
  - Therapy cessation [None]
  - Condition aggravated [None]
  - Colitis ulcerative [None]
  - Osteoarthritis [None]
  - Inappropriate schedule of product administration [None]
  - Synovitis [None]

NARRATIVE: CASE EVENT DATE: 20180315
